FAERS Safety Report 4440583-9 (Version None)
Quarter: 2004Q3

REPORT INFORMATION
  Report Type: 
  Country: None (occurrence: None)
  Receive Date: 20040903
  Receipt Date: 20040813
  Transmission Date: 20050211
  Serious: Yes (Hospitalization)
  Sender: FDA-Public Use
  Company Number: FR-ROCHE-377671

PATIENT
  Age: 57 Year
  Sex: Female

DRUGS (13)
  1. ROCEPHIN [Suspect]
     Indication: DRUG USE FOR UNKNOWN INDICATION
     Route: 042
     Dates: start: 20040611, end: 20040714
  2. PERFALGAN [Suspect]
     Indication: DRUG USE FOR UNKNOWN INDICATION
     Route: 042
     Dates: start: 20040525, end: 20040714
  3. OMEPRAZOLE [Suspect]
     Indication: DRUG USE FOR UNKNOWN INDICATION
     Route: 042
     Dates: start: 20040701, end: 20040714
  4. LASIX [Suspect]
     Indication: DRUG USE FOR UNKNOWN INDICATION
     Route: 042
     Dates: start: 20040605, end: 20040714
  5. TARGOCID [Suspect]
     Indication: DRUG USE FOR UNKNOWN INDICATION
     Route: 042
     Dates: start: 20040611, end: 20040714
  6. NORADRENALINE [Concomitant]
  7. DOBUTREX [Concomitant]
  8. IMOVANE [Concomitant]
     Dates: end: 20040708
  9. ASPEGIC 325 [Concomitant]
     Dates: end: 20040708
  10. SECTRAL [Concomitant]
     Dates: end: 20040708
  11. CALCIPARINE [Concomitant]
  12. DIPRIVAN [Concomitant]
  13. MORPHINE [Concomitant]
     Dates: end: 20040714

REACTIONS (5)
  - ENDOCARDITIS [None]
  - GASTROINTESTINAL MUCOSAL DISORDER [None]
  - GASTROINTESTINAL ULCER [None]
  - RASH [None]
  - SKIN DESQUAMATION [None]
